FAERS Safety Report 13615427 (Version 1)
Quarter: 2017Q2

REPORT INFORMATION
  Report Type: Spontaneous
  Country: US (occurrence: US)
  Receive Date: 20170606
  Receipt Date: 20170606
  Transmission Date: 20170830
  Serious: No
  Sender: FDA-Public Use
  Company Number: US-PFIZER INC-2017243847

PATIENT
  Age: 72 Year
  Sex: Male
  Weight: 69 kg

DRUGS (4)
  1. PROTONIX [Suspect]
     Active Substance: PANTOPRAZOLE SODIUM
     Indication: GASTROOESOPHAGEAL REFLUX DISEASE
     Dosage: 40 MG TABLET, 1X/DAY
  2. LISINOPRIL. [Concomitant]
     Active Substance: LISINOPRIL
     Indication: BLOOD PRESSURE ABNORMAL
     Dosage: 5 MG TABLET, 1X/DAY
  3. MANNITOL. [Suspect]
     Active Substance: MANNITOL
  4. PRAVASTATIN. [Concomitant]
     Active Substance: PRAVASTATIN
     Indication: AORTIC ANEURYSM
     Dosage: 80 MG, 1X/DAY

REACTIONS (1)
  - Reaction to drug excipients [Unknown]
